FAERS Safety Report 7724930-8 (Version None)
Quarter: 2011Q3

REPORT INFORMATION
  Report Type: 
  Country: None (occurrence: None)
  Receive Date: 20110901
  Receipt Date: 20110829
  Transmission Date: 20111222
  Serious: Yes (Hospitalization, Other)
  Sender: FDA-Public Use
  Company Number: CH-PFIZER INC-2011165308

PATIENT
  Age: 43 Year
  Sex: Male

DRUGS (16)
  1. ATORVASTATIN CALCIUM [Concomitant]
     Dosage: 40 MG DAILY
     Route: 048
  2. EFFEXOR XR [Suspect]
     Dosage: 150 MG DAILY
     Route: 048
  3. PANTOPRAZOLE [Concomitant]
     Dosage: 40 MG DAILY
     Route: 040
  4. CALCIMAGON-D3 [Concomitant]
     Dosage: ONE DOSE DAILY
     Route: 048
  5. RITALIN [Suspect]
     Dosage: 10 MG DAILY
     Route: 048
     Dates: end: 20110524
  6. HYDROCORTISONE GALEPHARM [Concomitant]
     Dosage: 10 MG, 3X/DAY
     Route: 048
  7. LEVEMIR [Concomitant]
     Route: 058
  8. NOVORAPID [Concomitant]
     Dosage: UNK
     Route: 058
  9. LEVOTHYROXINE SODIUM [Concomitant]
     Dosage: 0.15 MG DAILY
     Route: 048
  10. FOSAMAX [Concomitant]
     Dosage: 70 MG, WEEKLY
     Route: 048
  11. MINIRIN [Concomitant]
     Dosage: 1 DF, 2X/DAY
     Route: 045
  12. HALDOL [Concomitant]
  13. POTASSIUM CHLORIDE [Concomitant]
     Dosage: 8 MMOL DAILY
     Route: 048
  14. MORPHINE [Concomitant]
  15. TOPAMAX [Suspect]
     Dosage: 50 MG DAILY
     Route: 048
  16. PARACETAMOL [Concomitant]
     Dosage: 1 G, 4X/DAY
     Route: 048

REACTIONS (13)
  - ASPARTATE AMINOTRANSFERASE INCREASED [None]
  - MYALGIA [None]
  - INFECTION [None]
  - PYREXIA [None]
  - ALANINE AMINOTRANSFERASE INCREASED [None]
  - AGGRESSION [None]
  - TACHYCARDIA [None]
  - DIARRHOEA [None]
  - CONFUSIONAL STATE [None]
  - BLOOD CREATINE PHOSPHOKINASE INCREASED [None]
  - NEUROLEPTIC MALIGNANT SYNDROME [None]
  - DISTURBANCE IN ATTENTION [None]
  - CHILLS [None]
